FAERS Safety Report 15932767 (Version 1)
Quarter: 2019Q1

REPORT INFORMATION
  Report Type: Other
  Country: US (occurrence: US)
  Receive Date: 20190207
  Receipt Date: 20190207
  Transmission Date: 20190417
  Serious: No
  Sender: FDA-Public Use
  Company Number: US-SLATE RUN PHARMACEUTICALS-SLTR-AE-19-2

PATIENT
  Age: 8 Month
  Sex: Female

DRUGS (6)
  1. CALCIUM CARBONATE. [Concomitant]
     Active Substance: CALCIUM CARBONATE
  2. 70436-007-04 CINACALCET HYDROCHLORIDE TABLET 30MG [Suspect]
     Active Substance: CINACALCET HYDROCHLORIDE
     Indication: HYPERPARATHYROIDISM
     Dosage: THE PEAK EFFECTIVE DOSE DURING THE FIRST COURSE OF CINACALCET WAS 2.24 MG/KG/DAY.
  3. CALCIUM SUPPLEMENT [Concomitant]
     Active Substance: CALCIUM
     Dosage: EITHER CALCIUM CARBONATE AND/OR CALCIUM GLUBIONATE WAS USED.
  4. 70436-007-04 CINACALCET HYDROCHLORIDE TABLET 30MG [Suspect]
     Active Substance: CINACALCET HYDROCHLORIDE
     Indication: HYPERPARATHYROIDISM
     Dosage: THE INITIAL DOSE DURING THE FIRST COURSE OF CINACALCET WAS 1.12 MG/KG/DAY.
  5. 70436-007-04 CINACALCET HYDROCHLORIDE TABLET 30MG [Suspect]
     Active Substance: CINACALCET HYDROCHLORIDE
     Indication: HYPERPARATHYROIDISM
     Dosage: THE PEAK EFFECTIVE DOSE DURING THE SECOND COURSE OF CINACALCET WAS 3.13 MG/KG/DAY.
  6. ERGOCALCIFEROL. [Suspect]
     Active Substance: ERGOCALCIFEROL

REACTIONS (3)
  - Off label use [Unknown]
  - Hypercalcaemia [Unknown]
  - Hypocalcaemia [Unknown]
